FAERS Safety Report 5684458-6 (Version None)
Quarter: 2008Q1

REPORT INFORMATION
  Report Type: 
  Country: None (occurrence: None)
  Receive Date: 20080328
  Receipt Date: 20080319
  Transmission Date: 20080703
  Serious: Yes (Other)
  Sender: FDA-Public Use
  Company Number: GB-MERCK-0801GBR00072

PATIENT
  Age: 59 Year
  Sex: Male
  Weight: 76 kg

DRUGS (7)
  1. ZOCOR [Suspect]
     Indication: HYPERCHOLESTEROLAEMIA
     Route: 048
     Dates: start: 20060103, end: 20080110
  2. BENDROFLUMETHIAZIDE [Concomitant]
     Route: 065
     Dates: start: 20050308
  3. DOCOSAHEXAENOIC ACID [Concomitant]
     Route: 065
  4. EICOSAPENTAENOIC ACID [Concomitant]
     Route: 065
     Dates: start: 20060303
  5. EZETIMIBE [Suspect]
     Indication: BLOOD CHOLESTEROL INCREASED
     Route: 048
     Dates: start: 20060103, end: 20080124
  6. LEVOTHYROXINE SODIUM [Concomitant]
     Route: 065
     Dates: start: 20060712
  7. LEVOTHYROXINE SODIUM [Concomitant]
     Route: 065
     Dates: start: 20060420

REACTIONS (4)
  - AGGRESSION [None]
  - ANGER [None]
  - DEPRESSION [None]
  - FATIGUE [None]
